FAERS Safety Report 8789252 (Version 1)
Quarter: 2012Q4

REPORT INFORMATION
  Report Type: Spontaneous
  Country: US (occurrence: None)
  Receive Date: 20120910
  Receipt Date: 20120910
  Transmission Date: 20130627
  Serious: No
  Sender: FDA-Public Use
  Company Number: None

PATIENT
  Age: 85 Year
  Sex: Female
  Weight: 44.45 kg

DRUGS (1)
  1. DURAGESIC [Suspect]
     Indication: CHRONIC PAIN
     Dates: start: 20040304, end: 20040611

REACTIONS (2)
  - Nausea [None]
  - Vomiting [None]
